FAERS Safety Report 24167267 (Version 1)
Quarter: 2024Q3

REPORT INFORMATION
  Report Type: Spontaneous
  Country: GB (occurrence: GB)
  Receive Date: 20240802
  Receipt Date: 20240802
  Transmission Date: 20241016
  Serious: Yes (Other)
  Sender: RANBAXY
  Company Number: GB-SUN PHARMACEUTICAL INDUSTRIES LTD-2024RR-460959

PATIENT
  Age: 34 Year
  Sex: Female
  Weight: 75 kg

DRUGS (2)
  1. MORPHINE [Suspect]
     Active Substance: MORPHINE
     Indication: Specialist consultation
     Dosage: 7.5MG STAT DOSE
     Route: 065
     Dates: start: 20240718
  2. CYCLIZINE [Concomitant]
     Active Substance: CYCLIZINE
     Indication: Adverse drug reaction
     Dosage: UNK
     Route: 065
     Dates: start: 20240718

REACTIONS (2)
  - Maternal exposure during breast feeding [Unknown]
  - Abdominal pain [Not Recovered/Not Resolved]

NARRATIVE: CASE EVENT DATE: 20240718
